FAERS Safety Report 19626802 (Version 1)
Quarter: 2021Q3

REPORT INFORMATION
  Report Type: Spontaneous
  Country: GB (occurrence: GB)
  Receive Date: 20210729
  Receipt Date: 20210729
  Transmission Date: 20211014
  Serious: Yes (Other)
  Sender: FDA-Public Use
  Company Number: GB-TEVA-2021-GB-1936099

PATIENT
  Age: 62 Year
  Sex: Male
  Weight: 102 kg

DRUGS (15)
  1. DILTIAZEM. [Suspect]
     Active Substance: DILTIAZEM
     Indication: HAEMORRHOIDS
     Dosage: 90MG
     Route: 048
     Dates: start: 20210713
  2. TOSTRAN [Concomitant]
     Active Substance: TESTOSTERONE
     Dosage: AS DIRECTED
     Dates: start: 20210614
  3. SUKKARTO [Concomitant]
     Active Substance: METFORMIN HYDROCHLORIDE
     Dosage: 1000MG
  4. DIAZEPAM. [Concomitant]
     Active Substance: DIAZEPAM
     Dosage: 1 MILLIGRAM DAILY;
     Dates: start: 20210713
  5. FLUCLOXACILLIN [Concomitant]
     Active Substance: FLUCLOXACILLIN
     Dosage: 2000 MILLIGRAM DAILY;
     Dates: start: 20210505
  6. FERROUS FUMARATE [Concomitant]
     Active Substance: FERROUS FUMARATE
     Dosage: 210 MILLIGRAM DAILY;
     Dates: start: 20210526
  7. ISOSORBIDE MONONITRATE. [Concomitant]
     Active Substance: ISOSORBIDE MONONITRATE
     Dosage: 20 MILLIGRAM DAILY; 1 IN THE MORNING AND 1 AT 2PM
     Dates: start: 20210713
  8. SCHERIPROCT [Concomitant]
     Active Substance: DIBUCAINE HYDROCHLORIDE\PREDNISOLONE
     Dosage: 1 DOSAGE FORMS DAILY; WHEN REQUIRED
     Dates: start: 20210505
  9. ATORVASTATIN [Concomitant]
     Active Substance: ATORVASTATIN
     Dosage: 20 MILLIGRAM DAILY;
     Dates: start: 20210614
  10. GLYCERYL TRINITRATE [Concomitant]
     Active Substance: NITROGLYCERIN
     Dosage: 400MICROGRAMS/DOSE PUMP 1 ? 2 SPRAYS
     Route: 060
     Dates: start: 20210713
  11. METFORMIN [Concomitant]
     Active Substance: METFORMIN HYDROCHLORIDE
     Dosage: 2 DOSAGE FORMS DAILY;
     Dates: start: 20210617
  12. RAMIPRIL. [Concomitant]
     Active Substance: RAMIPRIL
     Dosage: 1.25 MILLIGRAM DAILY; AT NIGHT
     Dates: start: 20210614
  13. RIVAROXABAN [Concomitant]
     Active Substance: RIVAROXABAN
     Dosage: 20 MILLIGRAM DAILY;
     Dates: start: 20210614
  14. FLECAINIDE [Concomitant]
     Active Substance: FLECAINIDE
     Dosage: 200 MILLIGRAM DAILY;
     Dates: start: 20210614
  15. PIOGLITAZONE. [Concomitant]
     Active Substance: PIOGLITAZONE
     Dosage: 15 MILLIGRAM DAILY;
     Dates: start: 20210614

REACTIONS (1)
  - Confusional state [Recovered/Resolved]

NARRATIVE: CASE EVENT DATE: 20210712
